FAERS Safety Report 18708720 (Version 1)
Quarter: 2021Q1

REPORT INFORMATION
  Report Type: Spontaneous
  Country: US (occurrence: US)
  Receive Date: 20210106
  Receipt Date: 20210106
  Transmission Date: 20210419
  Serious: No
  Sender: FDA-Public Use
  Company Number: US-JNJFOC-20210104734

PATIENT
  Age: 44 Year
  Sex: Male
  Weight: 86.26 kg

DRUGS (1)
  1. CONCERTA [Suspect]
     Active Substance: METHYLPHENIDATE HYDROCHLORIDE
     Indication: ATTENTION DEFICIT HYPERACTIVITY DISORDER
     Route: 065
     Dates: start: 20200705

REACTIONS (3)
  - Psychosexual disorder [Unknown]
  - Adverse event [Unknown]
  - Libido increased [Unknown]

NARRATIVE: CASE EVENT DATE: 20200705
